FAERS Safety Report 6785228-8 (Version None)
Quarter: 2010Q2

REPORT INFORMATION
  Report Type: 
  Country: None (occurrence: None)
  Receive Date: 20100622
  Receipt Date: 20100622
  Transmission Date: 20101027
  Serious: Yes (Hospitalization)
  Sender: FDA-Public Use
  Company Number: None

PATIENT
  Age: 78 Year
  Sex: Female

DRUGS (9)
  1. BACTRIM DS [Suspect]
     Indication: INFECTION
     Dosage: 1600/320 MG BID PO
     Route: 048
  2. LOTREL [Concomitant]
  3. GLUCOPHAGE [Concomitant]
  4. COLCHICINE [Concomitant]
  5. ASPIRIN [Concomitant]
  6. ZOCOR [Concomitant]
  7. HYDRALAZINE HCL [Concomitant]
  8. VICODIN [Concomitant]
  9. HYDROCHLOROTHIAZIDE [Concomitant]

REACTIONS (2)
  - DEHYDRATION [None]
  - RENAL FAILURE ACUTE [None]
